FAERS Safety Report 7794207-3 (Version None)
Quarter: 2011Q4

REPORT INFORMATION
  Report Type: 
  Country: None (occurrence: None)
  Receive Date: 20111004
  Receipt Date: 20110922
  Transmission Date: 20120403
  Serious: Yes (Hospitalization, Other)
  Sender: FDA-Public Use
  Company Number: US-BAYER-2011-022064

PATIENT
  Age: 20 Year
  Sex: Female
  Weight: 52.154 kg

DRUGS (11)
  1. SERTRALINE HYDROCHLORIDE [Concomitant]
     Indication: DEPRESSION
  2. YAZ [Suspect]
     Indication: MOOD ALTERED
  3. YASMIN [Suspect]
     Indication: DYSMENORRHOEA
  4. YAZ [Suspect]
     Indication: PREMENSTRUAL SYNDROME
     Dosage: UNK
     Dates: start: 20060801, end: 20081001
  5. SERTRALINE HYDROCHLORIDE [Concomitant]
     Indication: ANXIETY
     Dosage: 100 MG, QD
     Route: 048
     Dates: start: 20080401, end: 20081201
  6. YASMIN [Suspect]
     Indication: MOOD ALTERED
  7. REMERON [Concomitant]
     Indication: ANXIETY
     Dosage: UNK
     Dates: start: 20080801, end: 20090101
  8. PAXIL [Concomitant]
     Indication: DEPRESSION
  9. YAZ [Suspect]
     Indication: DYSMENORRHOEA
  10. YASMIN [Suspect]
     Indication: PREMENSTRUAL SYNDROME
     Dosage: UNK
     Dates: start: 20060801, end: 20081001
  11. PAXIL [Concomitant]
     Indication: ANXIETY
     Dosage: UNK
     Dates: start: 20080101

REACTIONS (11)
  - RENAL IMPAIRMENT [None]
  - DEPRESSION [None]
  - RENAL NECROSIS [None]
  - PERSONALITY DISORDER [None]
  - RENAL EMBOLISM [None]
  - INJURY [None]
  - PAIN [None]
  - EMOTIONAL DISTRESS [None]
  - MENTAL DISORDER [None]
  - ANXIETY [None]
  - AFFECTIVE DISORDER [None]
